FAERS Safety Report 18121369 (Version 1)
Quarter: 2020Q3

REPORT INFORMATION
  Report Type: Other
  Country: US (occurrence: US)
  Receive Date: 20200807
  Receipt Date: 20200807
  Transmission Date: 20201103
  Serious: Yes (Hospitalization)
  Sender: FDA-Public Use
  Company Number: US-ROCHE-2378222

PATIENT
  Sex: Female

DRUGS (1)
  1. DORNASE ALFA. [Suspect]
     Active Substance: DORNASE ALFA
     Indication: CYSTIC FIBROSIS
     Dosage: AMPULE ?USE 1 AMPULE TWICE DAILY
     Route: 055

REACTIONS (1)
  - Pneumothorax [Unknown]
